FAERS Safety Report 9255908 (Version 6)
Quarter: 2017Q3

REPORT INFORMATION
  Report Type: Report from Study
  Country: AR (occurrence: AR)
  Receive Date: 20130425
  Receipt Date: 20170922
  Transmission Date: 20171128
  Serious: Yes (Life-Threatening, Hospitalization)
  Sender: FDA-Public Use
  Company Number: AR-AMGEN-ARGCT2013028220

PATIENT
  Age: 50 Year
  Sex: Female
  Weight: 44 kg

DRUGS (5)
  1. OXYCODONE [Concomitant]
     Active Substance: OXYCODONE
     Indication: BACK PAIN
     Dosage: 20 MG, UNK
     Dates: start: 20130220, end: 20130409
  2. DARBEPOETIN ALFA [Suspect]
     Active Substance: DARBEPOETIN ALFA
     Indication: ANAEMIA OF MALIGNANT DISEASE
     Dosage: 500 MUG, Q3WK
     Route: 065
     Dates: start: 20130313, end: 20130514
  3. CISPLATIN. [Concomitant]
     Active Substance: CISPLATIN
     Dosage: 70 MG/M2, UNK
     Dates: start: 20130104, end: 20130521
  4. NAPROXEN. [Concomitant]
     Active Substance: NAPROXEN
     Indication: BACK PAIN
     Dosage: 500 MG, UNK
     Dates: start: 20130220, end: 20130530
  5. PEMETREXED. [Concomitant]
     Active Substance: PEMETREXED
     Dosage: 500 MG/M2, UNK
     Dates: start: 20130104, end: 20130521

REACTIONS (2)
  - Dyspnoea [Recovered/Resolved]
  - Anaemia [Recovered/Resolved]

NARRATIVE: CASE EVENT DATE: 20130408
